FAERS Safety Report 25214899 (Version 2)
Quarter: 2025Q2

REPORT INFORMATION
  Report Type: Spontaneous
  Country: BE (occurrence: BE)
  Receive Date: 20250418
  Receipt Date: 20250625
  Transmission Date: 20250716
  Serious: Yes (Other)
  Sender: ROCHE
  Company Number: BE-002147023-NVSC2025BE062463

PATIENT
  Sex: Male

DRUGS (1)
  1. XOLAIR [Suspect]
     Active Substance: OMALIZUMAB
     Indication: Asthma
     Dosage: 450 MG (Q4W)
     Route: 058
     Dates: start: 2014

REACTIONS (8)
  - Depressed level of consciousness [Not Recovered/Not Resolved]
  - Cerebral disorder [Not Recovered/Not Resolved]
  - Feeling abnormal [Not Recovered/Not Resolved]
  - Vision blurred [Not Recovered/Not Resolved]
  - Gait disturbance [Not Recovered/Not Resolved]
  - Dysarthria [Not Recovered/Not Resolved]
  - Headache [Not Recovered/Not Resolved]
  - Visual impairment [Not Recovered/Not Resolved]
